FAERS Safety Report 8555911 (Version 3)
Quarter: 2012Q4

REPORT INFORMATION
  Report Type: 
  Country: US (occurrence: US)
  Receive Date: 20120510
  Receipt Date: 20121126
  Transmission Date: 20130627
  Serious: Yes (Hospitalization)
  Sender: FDA-Public Use
  Company Number: US-BAYER-2012-044297

PATIENT
  Age: 19 Year
  Sex: Female
  Weight: 68 kg

DRUGS (13)
  1. OCELLA [Suspect]
     Indication: CONTRACEPTION
     Dosage: UNK
     Dates: start: 20090826, end: 20100818
  2. OCELLA [Suspect]
     Indication: ACNE
  3. RESPIRATORY SYSTEM [Concomitant]
     Dosage: 8.5 g, 2 puffs four times daily as needed
     Dates: start: 20100622
  4. NAPROXEN [Concomitant]
     Indication: PAIN
     Dosage: 500 mg, one tablet BID
     Route: 048
     Dates: start: 20100720
  5. AZITHROMYCIN [Concomitant]
     Dosage: 250 mg, two tablets at once today, then one tablet - daily
     Dates: start: 20100720
  6. DICLOFENAC SODIUM [Concomitant]
     Dosage: 75 mg, 1 tablet BID
     Route: 048
     Dates: start: 20100729
  7. LEVAQUIN [Concomitant]
     Dosage: 750 mg, 1 tablet every day for 10 days
     Route: 048
     Dates: start: 20100731
  8. ALBUTEROL SULFATE [Concomitant]
     Indication: SHORTNESS OF BREATH
     Dosage: Inhale 2 puffs every four (4) to six (6) hours as needed
     Dates: start: 20100818
  9. ALBUTEROL SULFATE [Concomitant]
     Indication: WHEEZING
  10. CLINDAMYCIN PHOSPHATE/ BENZ [Concomitant]
     Dosage: Apply thin layer to entire face qam (every morning)
     Dates: start: 20100818
  11. BENZOYL PEROXIDE W/CLINDAMYCIN [Concomitant]
     Dosage: Apply thin layer to entire face qam (every morning)
     Dates: start: 20100818
  12. ADAPALENE [Concomitant]
     Dosage: Apply thin layer to entire face qhs (at bedtime)
     Dates: start: 20100818
  13. MINOCYCLINE HCL [Concomitant]
     Dosage: 45 mg, one (1) tablet daily
     Dates: start: 20100818

REACTIONS (8)
  - Pulmonary embolism [None]
  - Injury [None]
  - Pain [None]
  - Emotional distress [None]
  - Anhedonia [None]
  - Chest pain [None]
  - Dyspnoea [None]
  - Contusion [None]
